FAERS Safety Report 6725997-6 (Version None)
Quarter: 2010Q2

REPORT INFORMATION
  Report Type: 
  Country: None (occurrence: None)
  Receive Date: 20100514
  Receipt Date: 20100503
  Transmission Date: 20101027
  Serious: Yes (Other)
  Sender: FDA-Public Use
  Company Number: US-ELI_LILLY_AND_COMPANY-US201005000650

PATIENT
  Sex: Male

DRUGS (12)
  1. HUMULIN N [Suspect]
     Indication: DIABETES MELLITUS
     Dosage: 24 U, EACH MORNING
  2. HUMULIN N [Suspect]
     Dosage: 24 U, EACH MORNING
  3. HUMULIN N [Suspect]
     Dosage: 24 U, EACH MORNING
  4. HUMULIN N [Suspect]
     Dosage: 18 U, EACH EVENING
  5. HUMULIN N [Suspect]
     Dosage: 18 U, EACH EVENING
  6. HUMULIN N [Suspect]
     Dosage: 18 U, EACH EVENING
  7. HUMULIN R [Suspect]
     Indication: DIABETES MELLITUS
     Dosage: 8 U, EACH MORNING
  8. HUMULIN R [Suspect]
     Dosage: 8 U, EACH MORNING
  9. HUMULIN R [Suspect]
     Dosage: 8 U, EACH MORNING
  10. HUMULIN R [Suspect]
     Dosage: 6 U, EACH EVENING
  11. HUMULIN R [Suspect]
     Dosage: 6 U, EACH EVENING
  12. HUMULIN R [Suspect]
     Dosage: 6 U, EACH EVENING

REACTIONS (10)
  - BLOOD GLUCOSE DECREASED [None]
  - BLOOD GLUCOSE INCREASED [None]
  - DRUG INEFFECTIVE [None]
  - DYSGEUSIA [None]
  - EYE DISORDER [None]
  - EYE HAEMORRHAGE [None]
  - FEELING ABNORMAL [None]
  - INSOMNIA [None]
  - PARAESTHESIA [None]
  - RETINAL SCAR [None]
